FAERS Safety Report 7361546-X (Version None)
Quarter: 2011Q1

REPORT INFORMATION
  Report Type: 
  Country: None (occurrence: None)
  Receive Date: 20110309
  Receipt Date: 20110224
  Transmission Date: 20110831
  Serious: Yes (Hospitalization)
  Sender: FDA-Public Use
  Company Number: BR-001563

PATIENT
  Sex: Male

DRUGS (1)
  1. NAGLAZYME [Suspect]
     Indication: MUCOPOLYSACCHARIDOSIS VI
     Dosage: 10 MG 1X/WEEK, INTRAVENOUS DRIP
     Route: 041
     Dates: start: 20110214

REACTIONS (2)
  - PNEUMONIA [None]
  - UPPER RESPIRATORY TRACT INFECTION [None]
